FAERS Safety Report 14909127 (Version 2)
Quarter: 2018Q2

REPORT INFORMATION
  Report Type: Spontaneous
  Country: CN (occurrence: CN)
  Receive Date: 20180517
  Receipt Date: 20180524
  Transmission Date: 20180711
  Serious: Yes (Hospitalization)
  Sender: FDA-Public Use
  Company Number: CN-BAYER-2018-094000

PATIENT
  Age: 61 Year
  Sex: Male

DRUGS (2)
  1. AVELOX [Suspect]
     Active Substance: MOXIFLOXACIN HYDROCHLORIDE
     Dosage: 400 MG, QD
     Route: 042
     Dates: start: 20171225
  2. MEROPENEM. [Concomitant]
     Active Substance: MEROPENEM
     Dosage: 1 G, Q8HR
     Route: 042
     Dates: start: 20171225

REACTIONS (5)
  - Cough [None]
  - Pneumonia [None]
  - Chronic obstructive pulmonary disease [None]
  - Wheezing [None]
  - Dyspnoea [None]

NARRATIVE: CASE EVENT DATE: 20171225
